FAERS Safety Report 7334938-2 (Version None)
Quarter: 2011Q1

REPORT INFORMATION
  Report Type: 
  Country: None (occurrence: None)
  Receive Date: 20110307
  Receipt Date: 20110225
  Transmission Date: 20110831
  Serious: Yes (Death, Hospitalization, Other)
  Sender: FDA-Public Use
  Company Number: JP-ROCHE-752800

PATIENT
  Sex: Male

DRUGS (28)
  1. PREDONINE [Concomitant]
     Route: 048
     Dates: start: 20101001, end: 20101118
  2. URSO 250 [Concomitant]
     Route: 048
     Dates: start: 20101211, end: 20110103
  3. SANDIMMUNE [Suspect]
     Route: 041
     Dates: start: 20101123, end: 20101210
  4. PREDONINE [Concomitant]
     Route: 048
     Dates: start: 20101221, end: 20110103
  5. DEXAMETHASONE PALMITATE [Concomitant]
     Route: 041
     Dates: start: 20101201, end: 20101209
  6. DEXAMETHASONE PALMITATE [Concomitant]
     Route: 041
     Dates: start: 20101221, end: 20101227
  7. DEXAMETHASONE PALMITATE [Concomitant]
     Route: 041
  8. NEORAL [Concomitant]
     Route: 048
     Dates: start: 20101211, end: 20110104
  9. TOCILIZUMAB [Suspect]
     Indication: JUVENILE ARTHRITIS
     Route: 041
     Dates: start: 20101109, end: 20101109
  10. SANDIMMUNE [Suspect]
     Route: 041
     Dates: start: 20100927
  11. DIDRONEL [Concomitant]
     Route: 048
     Dates: start: 20101210, end: 20101224
  12. TOCILIZUMAB [Suspect]
     Route: 041
     Dates: start: 20101214, end: 20101228
  13. DEXAMETHASONE PALMITATE [Concomitant]
     Route: 041
     Dates: start: 20101228, end: 20110103
  14. RENIVEZE [Concomitant]
     Route: 048
     Dates: start: 20101008, end: 20110103
  15. TOCILIZUMAB [Suspect]
     Route: 041
     Dates: start: 20101116, end: 20101116
  16. SANDIMMUNE [Suspect]
     Route: 041
     Dates: start: 20101004
  17. DEXAMETHASONE PALMITATE [Concomitant]
     Route: 041
     Dates: start: 20101019, end: 20101024
  18. DEXAMETHASONE PALMITATE [Concomitant]
     Route: 041
     Dates: start: 20101026, end: 20101030
  19. NEORAL [Concomitant]
     Route: 048
     Dates: start: 20101013, end: 20101018
  20. SANDIMMUNE [Suspect]
     Route: 041
     Dates: start: 20101119, end: 20101122
  21. NEORAL [Concomitant]
     Dosage: PERORAL LIQUID PREPARATION
     Route: 048
     Dates: start: 20101005, end: 20101007
  22. NEORAL [Concomitant]
     Route: 048
     Dates: start: 20101008, end: 20101012
  23. DIDRONEL [Concomitant]
     Route: 048
     Dates: start: 20101210, end: 20101224
  24. DEXAMETHASONE PALMITATE [Concomitant]
     Route: 041
     Dates: start: 20101025, end: 20101025
  25. FAMOTIDINE [Concomitant]
     Route: 048
     Dates: start: 20100910, end: 20110103
  26. METHYLPREDNISOLONE [Concomitant]
     Route: 042
  27. SANDIMMUNE [Suspect]
     Indication: JUVENILE ARTHRITIS
     Route: 041
     Dates: start: 20100924, end: 20100926
  28. DEXAMETHASONE PALMITATE [Concomitant]
     Route: 041
     Dates: start: 20101210, end: 20101220

REACTIONS (11)
  - ESCHERICHIA BACTERAEMIA [None]
  - HEPATIC FAILURE [None]
  - TOXIC ENCEPHALOPATHY [None]
  - HISTIOCYTOSIS HAEMATOPHAGIC [None]
  - RESPIRATORY FAILURE [None]
  - ABDOMINAL DISCOMFORT [None]
  - CYTOMEGALOVIRUS TEST POSITIVE [None]
  - PLATELET COUNT DECREASED [None]
  - VASCULITIS [None]
  - RENAL FAILURE [None]
  - PLEURAL EFFUSION [None]
